FAERS Safety Report 6484876-2 (Version None)
Quarter: 2009Q4

REPORT INFORMATION
  Report Type: 
  Country: None (occurrence: None)
  Receive Date: 20091209
  Receipt Date: 20090605
  Transmission Date: 20100525
  Serious: No
  Sender: FDA-Public Use
  Company Number: US-AMGEN-KDL350331

PATIENT
  Sex: Female

DRUGS (1)
  1. ENBREL [Suspect]
     Indication: PSORIATIC ARTHROPATHY
     Dates: start: 20060918

REACTIONS (4)
  - BIOPSY BREAST [None]
  - COCHLEA IMPLANT [None]
  - ERYTHEMA [None]
  - TINEA PEDIS [None]
